FAERS Safety Report 20578467 (Version 1)
Quarter: 2022Q1

REPORT INFORMATION
  Report Type: Spontaneous
  Country: US (occurrence: None)
  Receive Date: 20220310
  Receipt Date: 20220310
  Transmission Date: 20220423
  Serious: No
  Sender: FDA-Public Use
  Company Number: US-PLXPHARMA-2022-PLX-00001

PATIENT
  Sex: Female

DRUGS (1)
  1. VAZALORE [Suspect]
     Active Substance: ASPIRIN
     Indication: Cardiovascular event prophylaxis
     Route: 048
     Dates: start: 20220101, end: 20220101

REACTIONS (2)
  - Back pain [Recovered/Resolved]
  - Nausea [Recovered/Resolved]

NARRATIVE: CASE EVENT DATE: 20220102
